FAERS Safety Report 8174712 (Version 4)
Quarter: 2012Q4

REPORT INFORMATION
  Report Type: 
  Country: US (occurrence: US)
  Receive Date: 20111010
  Receipt Date: 20121019
  Transmission Date: 20130627
  Serious: Yes (Hospitalization, Other)
  Sender: FDA-Public Use
  Company Number: US-ASTRAZENECA-2011SE55744

PATIENT
  Age: 80 Year
  Sex: Female
  Weight: 61.7 kg

DRUGS (23)
  1. NEXIUM [Suspect]
     Route: 048
     Dates: start: 2010
  2. PULMICORT FLEXHALER [Suspect]
     Indication: CHRONIC OBSTRUCTIVE PULMONARY DISEASE
     Route: 055
     Dates: start: 201108
  3. NAROPIN [Concomitant]
     Indication: NEUROPATHY PERIPHERAL
     Route: 048
     Dates: start: 2006
  4. CALCIUM [Concomitant]
     Route: 048
  5. SULINDAC [Concomitant]
     Indication: ARTHRITIS
     Dates: start: 1967
  6. ALDACTONE [Concomitant]
     Indication: BLOOD PRESSURE ABNORMAL
  7. COLISTIN [Concomitant]
     Indication: CHOLINERGIC SYNDROME
  8. CARDIZEM [Concomitant]
     Indication: CARDIAC DISORDER
  9. CARDIZEM [Concomitant]
     Indication: BLOOD PRESSURE ABNORMAL
  10. GLUBITOR [Concomitant]
     Indication: BLOOD GLUCOSE ABNORMAL
  11. PATADAY [Concomitant]
     Dosage: DAILY
  12. SYNTHROID [Concomitant]
  13. INTEGRA [Concomitant]
     Indication: IRON DEFICIENCY
     Dosage: DAILY
  14. TRICOR [Concomitant]
  15. VERAMYST [Concomitant]
     Indication: NASAL CONGESTION
     Route: 045
  16. VERAMYST [Concomitant]
     Indication: MULTIPLE ALLERGIES
     Route: 045
  17. ALBUTEROL [Concomitant]
     Dosage: 1 OR 2 PUFFS AS NEEDED
  18. RESTASIS [Concomitant]
     Indication: EYE LUBRICATION THERAPY
     Dosage: 0.4ML TAKEN AS 2 DROPS FOR EACH EYE TWICE A DAY
  19. HCTZ [Concomitant]
     Indication: BLOOD PRESSURE ABNORMAL
  20. POTASSIUM CHLORIDE [Concomitant]
  21. VITAMIN D [Concomitant]
  22. PLAVIX [Concomitant]
  23. QVAR [Concomitant]

REACTIONS (11)
  - Cerebral haemorrhage [Unknown]
  - Brain injury [Unknown]
  - Blood pressure decreased [Unknown]
  - Fall [Unknown]
  - Eye injury [Unknown]
  - Ocular ischaemic syndrome [Unknown]
  - Cerebrovascular accident [Unknown]
  - Glaucoma traumatic [Unknown]
  - Eye pain [Unknown]
  - Amnesia [Unknown]
  - Visual impairment [Unknown]
